FAERS Safety Report 10470958 (Version 1)
Quarter: 2014Q3

REPORT INFORMATION
  Report Type: Spontaneous
  Country: JP (occurrence: JP)
  Receive Date: 20140923
  Receipt Date: 20140923
  Transmission Date: 20150326
  Serious: Yes (Other)
  Sender: FDA-Public Use
  Company Number: PHHY2014JP122238

PATIENT
  Age: 66 Year
  Sex: Female

DRUGS (1)
  1. ZOLEDRONATE [Suspect]
     Active Substance: ZOLEDRONIC ACID
     Indication: MALIGNANT ASCITES
     Dosage: 1 MG
     Route: 042

REACTIONS (6)
  - Cancer pain [Unknown]
  - Insomnia [Unknown]
  - Nausea [Unknown]
  - Hyperalbuminaemia [Unknown]
  - Pneumonia aspiration [Unknown]
  - Pleural effusion [Unknown]
